FAERS Safety Report 18292286 (Version 1)
Quarter: 2020Q3

REPORT INFORMATION
  Report Type: Spontaneous
  Country: DE (occurrence: DE)
  Receive Date: 20200922
  Receipt Date: 20200922
  Transmission Date: 20201103
  Serious: Yes (Hospitalization)
  Sender: FDA-Public Use
  Company Number: DE-ROCHE-2680754

PATIENT
  Age: 44 Year
  Sex: Male
  Weight: 65 kg

DRUGS (9)
  1. LEVETIRACETAM. [Suspect]
     Active Substance: LEVETIRACETAM
     Indication: PRODUCT USED FOR UNKNOWN INDICATION
     Dosage: 1000 MG, 1?1?1?0, TABLET
     Route: 048
  2. RAMIPRIL. [Concomitant]
     Active Substance: RAMIPRIL
     Dosage: 5 MG, 1?0?0?0, TABLET
     Route: 048
  3. CLONAZEPAM. [Suspect]
     Active Substance: CLONAZEPAM
     Indication: PRODUCT USED FOR UNKNOWN INDICATION
     Dosage: 0.5 MG, 1?0?1?0, TABLETS
     Route: 048
  4. BUDESONIDE;FORMOTEROL [Concomitant]
     Active Substance: BUDESONIDE\FORMOTEROL
     Dosage: 2006 MCG, 2?0?0?0, DOSIERAEROSOL
     Route: 055
  5. BUTYLSCOPOLAMIN [Concomitant]
     Dosage: 10 MG, 1?1?1?0
  6. ZOPICLON [Concomitant]
     Active Substance: ZOPICLONE
     Dosage: 7.5 MG, 0?0?1?0, TABLETTEN
     Route: 048
  7. PANTOPRAZOL [Concomitant]
     Active Substance: PANTOPRAZOLE SODIUM
     Dosage: 40 MG, 1?0?0?0, TABLETTEN
     Route: 048
  8. METOPROLOL. [Concomitant]
     Active Substance: METOPROLOL
     Dosage: 47.5 MG, 0.5?0?0?0, RETARD?TABLETTEN
     Route: 048
  9. THIAMIN [Concomitant]
     Active Substance: THIAMINE
     Dosage: 200 MG, 1?0?0?0, TABLETTEN
     Route: 048

REACTIONS (2)
  - Condition aggravated [Unknown]
  - Abdominal pain [Unknown]
